FAERS Safety Report 8879160 (Version 1)
Quarter: 2012Q4

REPORT INFORMATION
  Report Type: Spontaneous
  Country: US (occurrence: None)
  Receive Date: 20121026
  Receipt Date: 20121026
  Transmission Date: 20130627
  Serious: No
  Sender: FDA-Public Use
  Company Number: None

PATIENT

DRUGS (2)
  1. APAP 500 [Suspect]
     Indication: ANALGESIA
     Route: 048
     Dates: start: 20121024, end: 20121025
  2. APAP 500 [Suspect]
     Indication: PYREXIA
     Route: 048
     Dates: start: 20121024, end: 20121025

REACTIONS (3)
  - Product label issue [None]
  - Product quality issue [None]
  - Product formulation issue [None]
